FAERS Safety Report 7300902-2 (Version None)
Quarter: 2011Q1

REPORT INFORMATION
  Report Type: 
  Country: None (occurrence: None)
  Receive Date: 20110103
  Receipt Date: 20100212
  Transmission Date: 20110831
  Serious: Yes (Life-Threatening, Hospitalization)
  Sender: FDA-Public Use
  Company Number: US-004037

PATIENT
  Age: 72 Year
  Sex: Female
  Weight: 80 kg

DRUGS (11)
  1. COREG [Concomitant]
  2. CATAPRES [Concomitant]
  3. MULTIVITAMIN [Concomitant]
  4. SIMVASTATIN [Concomitant]
  5. MULTIHANCE [Suspect]
     Indication: NUCLEAR MAGNETIC RESONANCE IMAGING ABDOMINAL
     Dosage: 16 ML ONCE INTRAVENOUS (NOT OTHERWISE SPECIFIED)
     Route: 042
     Dates: start: 20100202, end: 20100202
  6. MULTIHANCE [Suspect]
     Indication: HEPATIC NEOPLASM
     Dosage: 16 ML ONCE INTRAVENOUS (NOT OTHERWISE SPECIFIED)
     Route: 042
     Dates: start: 20100202, end: 20100202
  7. RETIN-A [Concomitant]
  8. LOTENSIN [Concomitant]
  9. IBUPROFEN [Concomitant]
  10. HYDROCHLOROTHIAZIDE [Concomitant]
  11. ASPIRIN [Concomitant]

REACTIONS (1)
  - ANAPHYLACTIC SHOCK [None]
